FAERS Safety Report 19708265 (Version 1)
Quarter: 2021Q3

REPORT INFORMATION
  Report Type: Spontaneous
  Country: IN (occurrence: IN)
  Receive Date: 20210816
  Receipt Date: 20210816
  Transmission Date: 20211014
  Serious: Yes (Other)
  Sender: FDA-Public Use
  Company Number: IN-PFIZER INC-202100996159

PATIENT
  Sex: Male

DRUGS (4)
  1. CYCLOSPORINE. [Concomitant]
     Active Substance: CYCLOSPORINE
     Indication: APLASTIC ANAEMIA
     Dosage: UNK
  2. ATGAM [Suspect]
     Active Substance: EQUINE THYMOCYTE IMMUNE GLOBULIN
     Indication: APLASTIC ANAEMIA
     Dosage: 40 MG/KG, DAILY
  3. RED BLOOD CELLS [Concomitant]
     Active Substance: HUMAN RED BLOOD CELL
     Indication: APLASTIC ANAEMIA
     Dosage: UNK
  4. PREDNISOLONE. [Concomitant]
     Active Substance: PREDNISOLONE
     Indication: APLASTIC ANAEMIA
     Dosage: 1 MG/KG, DAILY

REACTIONS (1)
  - Posterior reversible encephalopathy syndrome [Recovered/Resolved]
